FAERS Safety Report 23297913 (Version 1)
Quarter: 2023Q4

REPORT INFORMATION
  Report Type: Spontaneous
  Country: CA (occurrence: None)
  Receive Date: 20231214
  Receipt Date: 20231214
  Transmission Date: 20240109
  Serious: Yes (Other)
  Sender: FDA-Public Use
  Company Number: 2023A282926

PATIENT
  Age: 39 Year

DRUGS (3)
  1. OMEPRAZOLE [Suspect]
     Active Substance: OMEPRAZOLE
     Indication: Chronic spontaneous urticaria
     Dosage: 20.0MG UNKNOWN
  2. PIMECROLIMUS [Suspect]
     Active Substance: PIMECROLIMUS
     Indication: Chronic spontaneous urticaria
     Dosage: UNKNOWN
  3. PIMECROLIMUS [Suspect]
     Active Substance: PIMECROLIMUS
     Indication: Rosacea
     Dosage: UNKNOWN

REACTIONS (6)
  - Androgenetic alopecia [Unknown]
  - Chronic cutaneous lupus erythematosus [Unknown]
  - Lichen nitidus [Unknown]
  - Rash [Unknown]
  - Rosacea [Unknown]
  - Off label use [Unknown]
